FAERS Safety Report 8905961 (Version 1)
Quarter: 2012Q4

REPORT INFORMATION
  Report Type: 
  Country: MX (occurrence: MX)
  Receive Date: 20121111
  Receipt Date: 20121111
  Transmission Date: 20130627
  Serious: Yes (Other)
  Sender: FDA-Public Use
  Company Number: PHHY2012MX103070

PATIENT
  Sex: Female

DRUGS (5)
  1. CO-DIOVAN [Suspect]
     Indication: HYPERTENSION
     Dosage: 1 DF (160/12.5 mg) daily
  2. LOPRESOR [Concomitant]
     Indication: BLOOD PRESSURE
  3. STILNOX [Concomitant]
     Indication: SLEEP DISORDER
  4. TAFIL [Concomitant]
     Indication: SLEEP DISORDER
  5. AROPAX [Concomitant]
     Indication: SLEEP DISORDER

REACTIONS (2)
  - Osteoarthritis [Not Recovered/Not Resolved]
  - Gait disturbance [Not Recovered/Not Resolved]
